FAERS Safety Report 8428565-3 (Version None)
Quarter: 2012Q2

REPORT INFORMATION
  Report Type: 
  Country: None (occurrence: None)
  Receive Date: 20120606
  Receipt Date: 20120606
  Transmission Date: 20120825
  Serious: Yes (Disabling, Other)
  Sender: FDA-Public Use
  Company Number: None

PATIENT
  Sex: Male
  Weight: 113.3993 kg

DRUGS (2)
  1. NORVIR [Suspect]
     Indication: HIV INFECTION
     Dosage: ONCE A DAY
     Dates: start: 20111114, end: 20120605
  2. EPZICOM [Suspect]
     Indication: HIV INFECTION
     Dosage: ONCE A DAY
     Dates: start: 20101116, end: 20120605

REACTIONS (4)
  - GYNAECOMASTIA [None]
  - SPERM CONCENTRATION ZERO [None]
  - HYPERPHAGIA [None]
  - CHEST PAIN [None]
